FAERS Safety Report 5933163-7 (Version None)
Quarter: 2008Q4

REPORT INFORMATION
  Report Type: 
  Country: None (occurrence: None)
  Receive Date: 20081023
  Receipt Date: 20060511
  Transmission Date: 20090506
  Serious: Yes (Hospitalization, Other)
  Sender: FDA-Public Use
  Company Number: 2006AL002060

PATIENT
  Age: 67 Year

DRUGS (3)
  1. IBUPROFEN TABLETS [Suspect]
  2. HEPARIN [Concomitant]
  3. MORPHINE [Concomitant]

REACTIONS (2)
  - BARRETT'S OESOPHAGUS [None]
  - UPPER GASTROINTESTINAL HAEMORRHAGE [None]
